FAERS Safety Report 17495819 (Version 1)
Quarter: 2020Q1

REPORT INFORMATION
  Report Type: Spontaneous
  Country: US (occurrence: US)
  Receive Date: 20200304
  Receipt Date: 20200304
  Transmission Date: 20200409
  Serious: Yes (Hospitalization, Other)
  Sender: FDA-Public Use
  Company Number: NVSC2020US058998

PATIENT
  Age: 62 Year
  Sex: Female

DRUGS (1)
  1. MAYZENT [Suspect]
     Active Substance: SIPONIMOD
     Indication: PRODUCT USED FOR UNKNOWN INDICATION
     Route: 065

REACTIONS (7)
  - Influenza [Unknown]
  - Influenza A virus test [Unknown]
  - Pneumonia [Unknown]
  - Loss of control of legs [Unknown]
  - Dyspnoea [Unknown]
  - Influenza B virus test [Unknown]
  - Dehydration [Unknown]
